FAERS Safety Report 6814419-2 (Version None)
Quarter: 2010Q2

REPORT INFORMATION
  Report Type: 
  Country: None (occurrence: None)
  Receive Date: 20100629
  Receipt Date: 20100615
  Transmission Date: 20101027
  Serious: Yes (Other)
  Sender: FDA-Public Use
  Company Number: 20108873

PATIENT
  Age: 26 Year
  Sex: Female

DRUGS (1)
  1. LIORESAL [Suspect]
     Indication: MUSCLE SPASTICITY
     Dosage: 400 - 200 MCG, DAILY, INTRATHECAL
     Route: 037

REACTIONS (7)
  - ADHESION [None]
  - DEVICE DISLOCATION [None]
  - DRUG EFFECT DECREASED [None]
  - IMPLANT SITE CALCIFICATION [None]
  - INFLAMMATION [None]
  - INJECTION SITE FIBROSIS [None]
  - MASS [None]
